FAERS Safety Report 14246331 (Version 1)
Quarter: 2017Q4

REPORT INFORMATION
  Report Type: Spontaneous
  Country: US (occurrence: None)
  Receive Date: 20171201
  Receipt Date: 20171201
  Transmission Date: 20180321
  Serious: Yes (Death, Hospitalization)
  Sender: FDA-Public Use
  Company Number: None

PATIENT
  Age: 13 Year
  Sex: Male
  Weight: 55.8 kg

DRUGS (6)
  1. ONCASPAR [Suspect]
     Active Substance: PEGASPARGASE
     Dates: end: 20170214
  2. CYCLOPHOSPHAMIDE. [Suspect]
     Active Substance: CYCLOPHOSPHAMIDE
     Dates: end: 20170919
  3. CYTARABINE. [Suspect]
     Active Substance: CYTARABINE
     Dates: end: 20170929
  4. METHOTREXATE. [Suspect]
     Active Substance: METHOTREXATE
     Dates: end: 20170926
  5. THIOGUANINE (6-TG) [Suspect]
     Active Substance: THIOGUANINE ANHYDROUS
     Dates: end: 20171002
  6. VINCRISTINE SULFATE. [Suspect]
     Active Substance: VINCRISTINE SULFATE
     Dates: end: 20171012

REACTIONS (23)
  - Febrile neutropenia [None]
  - Nausea [None]
  - Acute kidney injury [None]
  - Sinusitis fungal [None]
  - Mental status changes [None]
  - Pericardial effusion [None]
  - Oedema peripheral [None]
  - Fluid overload [None]
  - Fungal infection [None]
  - Chorioretinitis [None]
  - Cholelithiasis [None]
  - CNS ventriculitis [None]
  - Abdominal pain [None]
  - Retinal disorder [None]
  - Seizure [None]
  - Pallor [None]
  - Hyperbilirubinaemia [None]
  - Hypernatraemia [None]
  - Multiple organ dysfunction syndrome [None]
  - Vomiting [None]
  - Colitis [None]
  - Proctalgia [None]
  - Cardiac arrest [None]

NARRATIVE: CASE EVENT DATE: 20171021
